FAERS Safety Report 8856896 (Version 1)
Quarter: 2012Q4

REPORT INFORMATION
  Report Type: Spontaneous
  Country: US (occurrence: None)
  Receive Date: 20121019
  Receipt Date: 20121019
  Transmission Date: 20130627
  Serious: Yes (Death)
  Sender: FDA-Public Use
  Company Number: 2012P1060753

PATIENT
  Sex: Male

DRUGS (1)
  1. FENTANYL (NO PREF. NAME) [Suspect]
     Dates: end: 2011

REACTIONS (1)
  - Incorrect route of drug administration [None]
